FAERS Safety Report 9913545 (Version 2)
Quarter: 2014Q2

REPORT INFORMATION
  Report Type: Spontaneous
  Country: JP (occurrence: JP)
  Receive Date: 20140220
  Receipt Date: 20140403
  Transmission Date: 20141212
  Serious: Yes (Hospitalization, Other)
  Sender: FDA-Public Use
  Company Number: JP-009507513-1402JPN007586

PATIENT
  Age: 77 Year
  Sex: Female
  Weight: 62 kg

DRUGS (12)
  1. PEGINTRON [Suspect]
     Indication: CHRONIC HEPATITIS C
     Dosage: 100 MICROGRAM, QD
     Route: 058
     Dates: start: 20131225
  2. PEGINTRON [Suspect]
     Dosage: 50 MICROGRAM, QW
     Route: 058
     Dates: start: 20140102
  3. PEGINTRON [Suspect]
     Dosage: 60 MICROGRAM, QW
     Route: 058
     Dates: start: 20140108
  4. PEGINTRON [Suspect]
     Dosage: 80 MICROGRAM, QW
     Route: 058
     Dates: start: 20140115, end: 20140122
  5. PEGINTRON [Suspect]
     Dosage: 40 MICROGRAM, QW
     Route: 058
     Dates: start: 20140129
  6. PEGINTRON [Suspect]
     Dosage: 50 MICROGRAM, QW
     Route: 058
     Dates: start: 20140205, end: 20140326
  7. REBETOL [Suspect]
     Indication: CHRONIC HEPATITIS C
     Dosage: 400 MG, BID
     Route: 048
     Dates: start: 20131225, end: 20140128
  8. REBETOL [Suspect]
     Dosage: 200 MG, BID
     Route: 048
     Dates: start: 20140129, end: 20140210
  9. REBETOL [Suspect]
     Dosage: 200 MG, BID
     Route: 048
     Dates: start: 20140221
  10. SIMEPREVIR [Suspect]
     Indication: CHRONIC HEPATITIS C
     Dosage: 100 MG, QD
     Route: 048
     Dates: start: 20140102, end: 20140326
  11. MYSLEE [Suspect]
     Indication: INSOMNIA
     Dosage: 5 MG, QD
     Route: 048
     Dates: start: 20131225, end: 20140326
  12. LOXONIN [Suspect]
     Indication: PYREXIA
     Dosage: 60 MG, QD
     Route: 048
     Dates: start: 20131225

REACTIONS (7)
  - Loss of consciousness [Recovered/Resolved]
  - Loss of consciousness [Recovered/Resolved]
  - Anaemia [Recovering/Resolving]
  - Neutrophil count decreased [Recovering/Resolving]
  - Nausea [Unknown]
  - Ventricular extrasystoles [Unknown]
  - Dyspnoea [Unknown]
